FAERS Safety Report 9087618 (Version 1)
Quarter: 2013Q1

REPORT INFORMATION
  Report Type: Spontaneous
  Country: US (occurrence: US)
  Receive Date: 20130131
  Receipt Date: 20130131
  Transmission Date: 20140127
  Serious: Yes (Hospitalization)
  Sender: FDA-Public Use
  Company Number: US-ELI_LILLY_AND_COMPANY-US201301009801

PATIENT
  Sex: Female

DRUGS (6)
  1. EFFIENT [Suspect]
     Indication: ARTERIAL STENOSIS
     Dosage: 10 MG, QD
  2. ISOSORBID MONONITRATE [Concomitant]
     Dosage: 30 MG, UNK
  3. ASPIRIN [Concomitant]
     Dosage: 325 MG, UNK
  4. LISINOPRIL [Concomitant]
     Dosage: 10 MG, UNK
  5. BISOPROLOL HCT [Concomitant]
     Dosage: 25 MG, UNK
  6. NIACIN FLUSH FREE [Concomitant]
     Dosage: 500 MG, UNK

REACTIONS (1)
  - Arterial stenosis [Unknown]
